FAERS Safety Report 26169166 (Version 1)
Quarter: 2025Q4

REPORT INFORMATION
  Report Type: Spontaneous
  Country: US (occurrence: None)
  Receive Date: 20251217
  Receipt Date: 20251217
  Transmission Date: 20260118
  Serious: Yes (Hospitalization)
  Sender: FDA-CTU
  Company Number: None

PATIENT
  Age: 67 Year
  Sex: Male
  Weight: 78.9 kg

DRUGS (3)
  1. CARBOPLATIN [Suspect]
     Active Substance: CARBOPLATIN
     Dates: end: 20251105
  2. CABAZITAXEL [Suspect]
     Active Substance: CABAZITAXEL
     Dates: end: 20251105
  3. PREDNISONE [Suspect]
     Active Substance: PREDNISONE
     Dosage: OTHER FREQUENCY : PER PATIENT MISSED 2 DOSES PRIOR TO BEING UNABLE TO TAKE PREDNISONE ON 11/24-11/25 DUE TO NAUSEA/VOM;
     Dates: end: 20251105

REACTIONS (9)
  - Aspartate aminotransferase increased [None]
  - Nausea [None]
  - Therapy interrupted [None]
  - Vomiting [None]
  - Back pain [None]
  - Dehydration [None]
  - Pelvic pain [None]
  - Dyspnoea [None]
  - Musculoskeletal chest pain [None]

NARRATIVE: CASE EVENT DATE: 20251126
